FAERS Safety Report 18007254 (Version 1)
Quarter: 2020Q3

REPORT INFORMATION
  Report Type: Spontaneous
  Country: US (occurrence: US)
  Receive Date: 20200710
  Receipt Date: 20200710
  Transmission Date: 20201103
  Serious: Yes (Other)
  Sender: FDA-Public Use
  Company Number: US-LANNETT COMPANY, INC.-US-2020LAN000159

PATIENT
  Sex: Female

DRUGS (1)
  1. OXYCODONE HCL AND ACETAMINOPHEN [Suspect]
     Active Substance: ACETAMINOPHEN\OXYCODONE HYDROCHLORIDE
     Indication: PRODUCT USED FOR UNKNOWN INDICATION
     Dosage: UNK
     Route: 065

REACTIONS (10)
  - Depression [Unknown]
  - Dizziness [Unknown]
  - Abdominal rigidity [Unknown]
  - Tremor [Unknown]
  - Hypothyroidism [Unknown]
  - Fibromyalgia [Unknown]
  - Mental status changes [Unknown]
  - Hypoaesthesia [Unknown]
  - Insomnia [Unknown]
  - Muscle spasms [Unknown]
